FAERS Safety Report 6636094-2 (Version None)
Quarter: 2010Q1

REPORT INFORMATION
  Report Type: 
  Country: None (occurrence: None)
  Receive Date: 20100311
  Receipt Date: 20100304
  Transmission Date: 20100710
  Serious: Yes (Other)
  Sender: FDA-Public Use
  Company Number: 1000012291

PATIENT
  Age: 75 Year
  Sex: Male

DRUGS (1)
  1. BYSTOLIC [Suspect]
     Indication: HYPERTENSION
     Dosage: 5 MG (5 MG, 1 IN 1 D),ORAL
     Route: 048
     Dates: start: 20090101

REACTIONS (4)
  - AGITATION [None]
  - ATRIAL FIBRILLATION [None]
  - ERECTILE DYSFUNCTION [None]
  - SLEEP APNOEA SYNDROME [None]
